FAERS Safety Report 7272903-4 (Version None)
Quarter: 2011Q1

REPORT INFORMATION
  Report Type: 
  Country: None (occurrence: None)
  Receive Date: 20110203
  Receipt Date: 20110127
  Transmission Date: 20110831
  Serious: Yes (Hospitalization, Other)
  Sender: FDA-Public Use
  Company Number: US-ELI_LILLY_AND_COMPANY-US200903003319

PATIENT
  Sex: Female
  Weight: 81.633 kg

DRUGS (7)
  1. BYETTA [Suspect]
     Dosage: UNK, UNKNOWN
     Route: 065
     Dates: start: 20051005, end: 20071101
  2. LOTREL [Concomitant]
     Dosage: 1 D/F, DAILY (1/D)
  3. LEVEMIR [Concomitant]
     Indication: DIABETES MELLITUS
     Dosage: 25 MG, 2/D
  4. CRESTOR [Concomitant]
     Dosage: 20 MG, DAILY (1/D)
  5. ELAVIL [Concomitant]
     Dosage: 20 MG, EACH EVENING AS NEEDED
  6. VICODIN [Concomitant]
     Indication: SHOULDER OPERATION
  7. LANTUS [Concomitant]
     Dosage: UNK, DAILY (1/D)

REACTIONS (6)
  - ABDOMINAL DISCOMFORT [None]
  - OFF LABEL USE [None]
  - NAUSEA [None]
  - RENAL INJURY [None]
  - BILE DUCT STONE [None]
  - PANCREATITIS [None]
